FAERS Safety Report 6668039-3 (Version None)
Quarter: 2010Q2

REPORT INFORMATION
  Report Type: 
  Country: None (occurrence: None)
  Receive Date: 20100405
  Receipt Date: 20100331
  Transmission Date: 20101027
  Serious: Yes (Hospitalization)
  Sender: FDA-Public Use
  Company Number: US-MERCK-1001USA00050

PATIENT
  Age: 55 Year
  Sex: Female
  Weight: 73 kg

DRUGS (8)
  1. FOSAMAX [Suspect]
     Indication: OSTEOPOROSIS
     Route: 048
     Dates: start: 19981112, end: 20011101
  2. FOSAMAX [Suspect]
     Route: 048
     Dates: start: 20011214, end: 20070101
  3. FOSAMAX [Suspect]
     Route: 048
     Dates: start: 20070705, end: 20080501
  4. FOSAMAX [Suspect]
     Route: 048
     Dates: start: 20080714
  5. FOSAMAX PLUS D [Suspect]
     Indication: OSTEOPOROSIS
     Route: 048
     Dates: start: 20070406, end: 20070601
  6. FOSAMAX PLUS D [Suspect]
     Route: 048
     Dates: start: 20080612
  7. FOSAMAX PLUS D [Suspect]
     Route: 048
     Dates: start: 20080822
  8. CALCIUM (UNSPECIFIED) [Concomitant]
     Route: 065

REACTIONS (19)
  - AORTIC VALVE INCOMPETENCE [None]
  - DEPRESSION [None]
  - DEVICE FAILURE [None]
  - DUPUYTREN'S CONTRACTURE [None]
  - FALL [None]
  - FEMUR FRACTURE [None]
  - FIBROCYSTIC BREAST DISEASE [None]
  - FRACTURE DELAYED UNION [None]
  - FRACTURE NONUNION [None]
  - HYPERLIPIDAEMIA [None]
  - HYPERTENSION [None]
  - HYPOTHYROIDISM [None]
  - LOW TURNOVER OSTEOPATHY [None]
  - LUNG NEOPLASM [None]
  - MITRAL VALVE PROLAPSE [None]
  - NASOPHARYNGITIS [None]
  - NEUROPATHY PERIPHERAL [None]
  - STERNAL FRACTURE [None]
  - VERTIGO [None]
